FAERS Safety Report 9007427 (Version 5)
Quarter: 2013Q2

REPORT INFORMATION
  Report Type: Report from Study
  Country: CA (occurrence: CA)
  Receive Date: 20130110
  Receipt Date: 20130412
  Transmission Date: 20140414
  Serious: Yes (Hospitalization)
  Sender: FDA-Public Use
  Company Number: CA-ABBOTT-13P-028-1030007-00

PATIENT
  Age: 41 Year
  Sex: Female

DRUGS (2)
  1. HUMIRA [Suspect]
     Indication: COLITIS ULCERATIVE
     Dosage: BASELINE
     Route: 058
     Dates: start: 20121210, end: 20121210
  2. HUMIRA [Suspect]
     Route: 058
     Dates: start: 20121220

REACTIONS (1)
  - Arthralgia [Recovered/Resolved]
